FAERS Safety Report 6076657-9 (Version None)
Quarter: 2009Q1

REPORT INFORMATION
  Report Type: 
  Country: None (occurrence: None)
  Receive Date: 20090213
  Receipt Date: 20090130
  Transmission Date: 20090719
  Serious: Yes (Other)
  Sender: FDA-Public Use
  Company Number: PHHY2009BE01838

PATIENT
  Sex: Female

DRUGS (8)
  1. EXFORGE [Suspect]
  2. RASILEZ [Suspect]
  3. LASIX [Concomitant]
  4. ISOTEN [Concomitant]
  5. MOXON [Concomitant]
  6. NOVONORM [Concomitant]
  7. CALCIUM [Concomitant]
  8. D-CURE [Concomitant]

REACTIONS (1)
  - RENAL IMPAIRMENT [None]
